FAERS Safety Report 4721931-9 (Version None)
Quarter: 2005Q3

REPORT INFORMATION
  Report Type: 
  Country: None (occurrence: None)
  Receive Date: 20050722
  Receipt Date: 20050714
  Transmission Date: 20060218
  Serious: Yes (Other)
  Sender: FDA-Public Use
  Company Number: PHNR2005AU01121

PATIENT
  Age: 76 Year
  Sex: Male

DRUGS (4)
  1. AREDIA [Suspect]
     Indication: PROPHYLAXIS
     Dosage: 90 MG, QMO
     Dates: start: 20000201, end: 20040601
  2. ZOMETA [Suspect]
     Dosage: 4 MG, ONCE/SINGLE
     Dates: start: 20040402, end: 20040402
  3. CHEMOTHERAPEUTICS,OTHER [Concomitant]
     Dosage: ^INTERMITTENT^
     Dates: start: 19960401, end: 20021101
  4. STEROIDS NOS [Concomitant]
     Dates: end: 20021101

REACTIONS (7)
  - ASEPTIC NECROSIS BONE [None]
  - BONE DISORDER [None]
  - DENTAL ALVEOLAR ANOMALY [None]
  - FACIAL NEURALGIA [None]
  - PAIN IN JAW [None]
  - SOFT TISSUE INFECTION [None]
  - TOOTH EXTRACTION [None]
